FAERS Safety Report 25928173 (Version 1)
Quarter: 2025Q4

REPORT INFORMATION
  Report Type: Spontaneous
  Country: BR (occurrence: BR)
  Receive Date: 20251016
  Receipt Date: 20251016
  Transmission Date: 20260117
  Serious: Yes (Other)
  Sender: TEVA
  Company Number: BR-TEVA-VS-3381215

PATIENT
  Sex: Male

DRUGS (1)
  1. LISDEXAMFETAMINE [Suspect]
     Active Substance: LISDEXAMFETAMINE
     Indication: Attention deficit hyperactivity disorder
     Dosage: ONE EVERY DAY, TAKING ONE TABLET THIS MORNING, ISDEXAMFETAMINE DIMESYLATE
     Route: 048
     Dates: start: 20251007

REACTIONS (6)
  - Presyncope [Recovering/Resolving]
  - Adverse drug reaction [Unknown]
  - Dizziness [Recovering/Resolving]
  - Palpitations [Unknown]
  - Malaise [Recovering/Resolving]
  - Asthenia [Recovering/Resolving]

NARRATIVE: CASE EVENT DATE: 20251007
